FAERS Safety Report 25434663 (Version 1)
Quarter: 2025Q2

REPORT INFORMATION
  Report Type: Spontaneous
  Country: US (occurrence: US)
  Receive Date: 20250613
  Receipt Date: 20250613
  Transmission Date: 20250717
  Serious: No
  Sender: SANOFI AVENTIS
  Company Number: US-SA-2025SA166080

PATIENT
  Age: 68 Year
  Sex: Male
  Weight: 91.36 kg

DRUGS (9)
  1. KEVZARA [Suspect]
     Active Substance: SARILUMAB
     Indication: Polymyalgia rheumatica
     Dosage: 200 MG, QOW
     Route: 058
     Dates: start: 20250211, end: 2025
  2. VITAMIN C [Concomitant]
     Active Substance: ASCORBIC ACID
  3. VITAMINS [Concomitant]
     Active Substance: VITAMINS
  4. EZETIMIBE [Concomitant]
     Active Substance: EZETIMIBE
  5. RESTASIS [Concomitant]
     Active Substance: CYCLOSPORINE
  6. DORZOLAMIDE [Concomitant]
     Active Substance: DORZOLAMIDE
  7. LUMIGAN [Concomitant]
     Active Substance: BIMATOPROST
  8. EDARBYCLOR [Concomitant]
     Active Substance: AZILSARTAN KAMEDOXOMIL\CHLORTHALIDONE
  9. PREDNISONE [Concomitant]
     Active Substance: PREDNISONE

REACTIONS (1)
  - Hepatic enzyme increased [Not Recovered/Not Resolved]

NARRATIVE: CASE EVENT DATE: 20250101
